FAERS Safety Report 21200773 (Version 2)
Quarter: 2022Q4

REPORT INFORMATION
  Report Type: Report from Study
  Country: US (occurrence: US)
  Receive Date: 20220811
  Receipt Date: 20221007
  Transmission Date: 20230113
  Serious: Yes (Hospitalization, Other)
  Sender: FDA-Public Use
  Company Number: US-ACORDA-ACO_173137_2022

PATIENT
  Sex: Male

DRUGS (3)
  1. INBRIJA [Suspect]
     Active Substance: LEVODOPA
     Indication: Parkinson^s disease
     Dosage: 2 DOSAGE FORM (84MG), PRN (NOT TO EXCEED 5 DOSES A DAY)
  2. INBRIJA [Suspect]
     Active Substance: LEVODOPA
     Indication: On and off phenomenon
  3. CARBIDOPA AND LEVODOPA [Concomitant]
     Active Substance: CARBIDOPA\LEVODOPA
     Indication: Product used for unknown indication
     Dosage: 25/100 5 PER DAY, 50/200 3 X DAY
     Route: 065

REACTIONS (3)
  - Urinary tract infection [Recovered/Resolved]
  - Sepsis [Recovered/Resolved]
  - Pneumonia [Recovered/Resolved]
